FAERS Safety Report 14328749 (Version 1)
Quarter: 2017Q4

REPORT INFORMATION
  Report Type: Spontaneous
  Country: US (occurrence: US)
  Receive Date: 20171227
  Receipt Date: 20171227
  Transmission Date: 20180321
  Serious: No
  Sender: FDA-Public Use
  Company Number: US-BIOGEN-2017BI00490414

PATIENT
  Sex: Female

DRUGS (2)
  1. TECFIDERA [Suspect]
     Active Substance: DIMETHYL FUMARATE
     Indication: MULTIPLE SCLEROSIS
     Dosage: MAINTENANCE DOSE
     Route: 048
  2. AMPYRA [Concomitant]
     Active Substance: DALFAMPRIDINE
     Indication: GAIT DISTURBANCE
     Route: 048
     Dates: start: 2016

REACTIONS (11)
  - Electrocardiogram abnormal [Unknown]
  - Snoring [Unknown]
  - Fall [Unknown]
  - Cognitive disorder [Unknown]
  - Somnolence [Unknown]
  - Paraesthesia [Unknown]
  - Memory impairment [Unknown]
  - Anxiety disorder [Unknown]
  - Poor quality sleep [Unknown]
  - Headache [Unknown]
  - Hypoaesthesia [Unknown]
